FAERS Safety Report 24523965 (Version 4)
Quarter: 2025Q1

REPORT INFORMATION
  Report Type: Spontaneous
  Country: US (occurrence: US)
  Receive Date: 20241018
  Receipt Date: 20250124
  Transmission Date: 20250409
  Serious: No
  Sender: SANOFI AVENTIS
  Company Number: US-SA-2024SA294790

PATIENT
  Age: 6 Year
  Sex: Male

DRUGS (16)
  1. DUPIXENT [Suspect]
     Active Substance: DUPILUMAB
     Indication: Dermatitis atopic
     Dosage: 300 MG, Q4W
     Route: 058
     Dates: start: 20230527
  2. DUPIXENT [Suspect]
     Active Substance: DUPILUMAB
     Indication: Dermatitis atopic
  3. DUPIXENT [Suspect]
     Active Substance: DUPILUMAB
     Dosage: Q4W
     Route: 058
     Dates: start: 20241028
  4. AZITHROMYCIN [Concomitant]
     Active Substance: AZITHROMYCIN
  5. EPINEPHRINE [EPINEPHRINE HYDROCHLORIDE] [Concomitant]
  6. ERYTHROMYCIN [Concomitant]
     Active Substance: ERYTHROMYCIN
  7. FLUCONAZOLE [Concomitant]
     Active Substance: FLUCONAZOLE
  8. HYDROXYZINE HYDROCHLORIDE [Concomitant]
     Active Substance: HYDROXYZINE HYDROCHLORIDE
  9. HYDROXYZINE HYDROCHLORIDE [Concomitant]
     Active Substance: HYDROXYZINE HYDROCHLORIDE
  10. MONTELUKAST SODIUM [Concomitant]
     Active Substance: MONTELUKAST SODIUM
  11. TACROLIMUS [Concomitant]
     Active Substance: TACROLIMUS
  12. TRIAMCINOLONE [Concomitant]
     Active Substance: TRIAMCINOLONE
  13. MONTELUKAST SODIUM [Concomitant]
     Active Substance: MONTELUKAST SODIUM
  14. MELATONIN [Concomitant]
     Active Substance: MELATONIN
  15. MUPIROCIN [Concomitant]
     Active Substance: MUPIROCIN
     Dosage: BID
  16. FLUOCINONIDE [Concomitant]
     Active Substance: FLUOCINONIDE
     Dosage: BID

REACTIONS (5)
  - Infection [Unknown]
  - Discomfort [Unknown]
  - Nasopharyngitis [Unknown]
  - Rash [Unknown]
  - Drug ineffective [Unknown]

NARRATIVE: CASE EVENT DATE: 20240101
